FAERS Safety Report 13554332 (Version 1)
Quarter: 2017Q2

REPORT INFORMATION
  Report Type: Spontaneous
  Country: US (occurrence: US)
  Receive Date: 20170517
  Receipt Date: 20170517
  Transmission Date: 20170830
  Serious: Yes (Disabling)
  Sender: FDA-Public Use
  Company Number: None

PATIENT
  Age: 61 Year
  Sex: Female
  Weight: 64.41 kg

DRUGS (1)
  1. PHENTERMINE 37.5MG CAP [Suspect]
     Active Substance: PHENTERMINE
     Indication: WEIGHT CONTROL
     Dosage: FREQUENCY - 1/2 PILL TWICE DAILY
     Route: 048
     Dates: start: 20170215, end: 20170413

REACTIONS (3)
  - Tricuspid valve incompetence [None]
  - Pulmonary hypertension [None]
  - Left ventricular dysfunction [None]

NARRATIVE: CASE EVENT DATE: 20170327
